FAERS Safety Report 4621249-9 (Version None)
Quarter: 2005Q1

REPORT INFORMATION
  Report Type: 
  Country: None (occurrence: None)
  Receive Date: 20050329
  Receipt Date: 20050317
  Transmission Date: 20050727
  Serious: Yes (Death, Hospitalization)
  Sender: FDA-Public Use
  Company Number: NSADSS2001024134

PATIENT
  Sex: Female
  Weight: 90 kg

DRUGS (5)
  1. REMICADE [Suspect]
     Route: 041
     Dates: start: 20000612
  2. REMICADE [Suspect]
     Route: 041
     Dates: start: 20000612
  3. REMICADE [Suspect]
     Indication: SCLERODERMA
     Route: 041
     Dates: start: 20000612
  4. PREDNISONE [Concomitant]
  5. D-PENICILLAMINE [Concomitant]

REACTIONS (2)
  - DISEASE PROGRESSION [None]
  - INTERSTITIAL LUNG DISEASE [None]
